FAERS Safety Report 6879417-1 (Version None)
Quarter: 2010Q3

REPORT INFORMATION
  Report Type: 
  Country: None (occurrence: None)
  Receive Date: 20100728
  Receipt Date: 20100715
  Transmission Date: 20110219
  Serious: Yes (Disabling)
  Sender: FDA-Public Use
  Company Number: PHHY2010US41917

PATIENT
  Sex: Female
  Weight: 76.871 kg

DRUGS (8)
  1. RECLAST [Suspect]
     Indication: OSTEOPOROSIS
     Dosage: ONCE A YEAR
     Route: 042
     Dates: start: 20100623, end: 20100623
  2. ARICEPT [Concomitant]
     Dosage: 10 MG TABLET, ONE TABLET/DAY
     Route: 048
  3. VITAMIN D [Concomitant]
     Dosage: 50,000 INT UNIT,ONCE WEEKLY FOR 8 WEEKS
     Route: 048
  4. ASPIRIN [Concomitant]
     Dosage: 81 MG, 1 TABLET/DAY
     Route: 048
  5. PAXIL [Concomitant]
     Dosage: 40 MG, 1 TABLET/DAY
  6. CENTRUM SILVER [Concomitant]
     Dosage: 1 TABLET/DAY
     Route: 048
  7. CALCIUM CITRATE [Concomitant]
     Dosage: 500 MG,1 TABLET/DAY
     Route: 048
  8. NAMENDA [Concomitant]
     Dosage: 10 MG, 1 TABLET/TWICE DAILY
     Route: 048

REACTIONS (2)
  - HEADACHE [None]
  - MUSCULAR WEAKNESS [None]
